FAERS Safety Report 12973513 (Version 4)
Quarter: 2017Q1

REPORT INFORMATION
  Report Type: Spontaneous
  Country: US (occurrence: US)
  Receive Date: 20161124
  Receipt Date: 20170227
  Transmission Date: 20170428
  Serious: Yes (Other)
  Sender: FDA-Public Use
  Company Number: US-JNJFOC-20161119199

PATIENT
  Age: 14 Year
  Sex: Male
  Weight: 154.22 kg

DRUGS (13)
  1. RISPERIDONE. [Suspect]
     Active Substance: RISPERIDONE
     Indication: AUTISM
     Dosage: 1-4MG
     Route: 048
     Dates: start: 201205, end: 201304
  2. RISPERDAL [Suspect]
     Active Substance: RISPERIDONE
     Indication: DRUG THERAPY
     Dosage: 0.25 - 0.5MG
     Route: 048
     Dates: start: 200308, end: 200409
  3. RISPERDAL [Suspect]
     Active Substance: RISPERIDONE
     Indication: AUTISM
     Dosage: 0.25 - 0.5MG
     Route: 048
     Dates: start: 200308, end: 200409
  4. INVEGA [Suspect]
     Active Substance: PALIPERIDONE
     Indication: AUTISM
     Route: 048
  5. RISPERDAL [Suspect]
     Active Substance: RISPERIDONE
     Indication: MOOD SWINGS
     Dosage: 0.25 - 0.5MG
     Route: 048
     Dates: start: 200308, end: 200409
  6. RISPERIDONE. [Suspect]
     Active Substance: RISPERIDONE
     Indication: AUTISM
     Route: 048
  7. RISPERDAL [Suspect]
     Active Substance: RISPERIDONE
     Indication: MOOD SWINGS
     Route: 048
  8. INVEGA [Suspect]
     Active Substance: PALIPERIDONE
     Indication: AUTISM
     Route: 048
     Dates: start: 201211, end: 201212
  9. SEROQUEL [Suspect]
     Active Substance: QUETIAPINE FUMARATE
     Indication: AUTISM
     Route: 065
     Dates: start: 200408, end: 200708
  10. SEROQUEL [Suspect]
     Active Substance: QUETIAPINE FUMARATE
     Indication: AUTISM
     Route: 065
  11. RISPERDAL [Suspect]
     Active Substance: RISPERIDONE
     Indication: DRUG THERAPY
     Route: 048
  12. RISPERDAL [Suspect]
     Active Substance: RISPERIDONE
     Indication: AUTISM
     Route: 048
  13. CLONAZEPAM. [Suspect]
     Active Substance: CLONAZEPAM
     Indication: PRODUCT USED FOR UNKNOWN INDICATION
     Route: 048
     Dates: start: 2010, end: 2012

REACTIONS (4)
  - Gynaecomastia [Unknown]
  - Muscle twitching [Unknown]
  - Emotional disorder [Unknown]
  - Obesity [Unknown]

NARRATIVE: CASE EVENT DATE: 2010
